FAERS Safety Report 5889839-3 (Version None)
Quarter: 2008Q3

REPORT INFORMATION
  Report Type: 
  Country: None (occurrence: None)
  Receive Date: 20080919
  Receipt Date: 20070418
  Transmission Date: 20090109
  Serious: Yes (Hospitalization)
  Sender: FDA-Public Use
  Company Number: IT-ROCHE-571214

PATIENT
  Sex: Male

DRUGS (2)
  1. PEGASYS [Suspect]
     Route: 065
     Dates: start: 20050926, end: 20070911
  2. RIBAVIRIN [Suspect]
     Route: 065
     Dates: start: 20050926, end: 20070911

REACTIONS (1)
  - PERICARDITIS [None]
